FAERS Safety Report 8134761 (Version 2)
Quarter: 2013Q3

REPORT INFORMATION
  Report Type: Spontaneous
  Country: US (occurrence: US)
  Receive Date: 20110914
  Receipt Date: 20130911
  Transmission Date: 20140515
  Serious: No
  Sender: FDA-Public Use
  Company Number: US-BIOGENIDEC-2011BI034571

PATIENT
  Age: 39 Year
  Sex: Female

DRUGS (10)
  1. TYSABRI [Suspect]
     Indication: MULTIPLE SCLEROSIS
     Route: 042
     Dates: start: 20101221, end: 20130605
  2. BETASERON [Concomitant]
  3. NEURONTIN [Concomitant]
     Indication: BAND SENSATION
  4. NEURONTIN [Concomitant]
     Indication: PAIN IN EXTREMITY
  5. LYRICA [Concomitant]
     Indication: PAIN IN EXTREMITY
  6. LYRICA [Concomitant]
     Indication: BAND SENSATION
  7. AMBIEN [Concomitant]
     Indication: SLEEP DISORDER
  8. LEXAPRO [Concomitant]
     Indication: DEPRESSION
  9. MELOXICAM [Concomitant]
     Indication: BAND SENSATION
  10. MELOXICAM [Concomitant]
     Indication: PAIN IN EXTREMITY

REACTIONS (13)
  - Muscular weakness [Recovered/Resolved]
  - Migraine [Recovered/Resolved]
  - Cough [Recovered/Resolved]
  - Blood cholesterol abnormal [Unknown]
  - Sinus disorder [Recovered/Resolved]
  - Multiple allergies [Recovered/Resolved]
  - Respiratory disorder [Recovered/Resolved]
  - Blood pressure abnormal [Unknown]
  - Drug withdrawal syndrome [Recovered/Resolved]
  - Fatigue [Recovered/Resolved]
  - Drug effect decreased [Recovered/Resolved]
  - Upper respiratory tract infection [Recovered/Resolved]
  - Headache [Not Recovered/Not Resolved]
